FAERS Safety Report 16595722 (Version 7)
Quarter: 2019Q3

REPORT INFORMATION
  Report Type: Report from Study
  Country: None (occurrence: ES)
  Receive Date: 20190719
  Receipt Date: 20190921
  Transmission Date: 20191004
  Serious: Yes (Hospitalization, Other)
  Sender: FDA-Public Use
  Company Number: ES-ABBVIE-19K-144-2858689-00

PATIENT
  Age: 81 Year
  Sex: Male

DRUGS (1)
  1. DUODOPA [Suspect]
     Active Substance: CARBIDOPA\LEVODOPA
     Indication: PARKINSON^S DISEASE
     Route: 050
     Dates: start: 20190522

REACTIONS (16)
  - Arthralgia [Unknown]
  - Knee arthroplasty [Unknown]
  - Dyskinesia [Not Recovered/Not Resolved]
  - Urinary tract infection [Not Recovered/Not Resolved]
  - Hypophagia [Not Recovered/Not Resolved]
  - Drug ineffective [Not Recovered/Not Resolved]
  - Device occlusion [Recovered/Resolved]
  - Aphasia [Not Recovered/Not Resolved]
  - On and off phenomenon [Recovering/Resolving]
  - Incorrect route of product administration [Unknown]
  - Mobility decreased [Not Recovered/Not Resolved]
  - Device dislocation [Unknown]
  - Gait disturbance [Unknown]
  - Musculoskeletal stiffness [Recovered/Resolved]
  - Fall [Not Recovered/Not Resolved]
  - Dysstasia [Not Recovered/Not Resolved]

NARRATIVE: CASE EVENT DATE: 2019
